FAERS Safety Report 25989554 (Version 2)
Quarter: 2025Q4

REPORT INFORMATION
  Report Type: Spontaneous
  Country: SY (occurrence: SY)
  Receive Date: 20251103
  Receipt Date: 20251107
  Transmission Date: 20260118
  Serious: Yes (Life-Threatening, Hospitalization)
  Sender: MACLEODS
  Company Number: SY-MACLEODS PHARMA-MAC2025055976

PATIENT

DRUGS (1)
  1. METFORMIN [Suspect]
     Active Substance: METFORMIN HYDROCHLORIDE
     Indication: Weight decreased
     Dosage: OVER THE COURSE OF A YEAR
     Route: 065
     Dates: start: 2021, end: 2022

REACTIONS (18)
  - Multiple organ dysfunction syndrome [Recovered/Resolved]
  - Cholestasis [Recovered/Resolved]
  - Ischaemic hepatitis [Recovered/Resolved]
  - Acute kidney injury [Recovered/Resolved]
  - Pancreatitis [Recovered/Resolved]
  - Hepatic function abnormal [Recovered/Resolved]
  - Respiratory failure [Recovered/Resolved]
  - Ascites [Recovered/Resolved]
  - Gallbladder enlargement [Recovered/Resolved]
  - Kidney enlargement [Recovered/Resolved]
  - Hepatomegaly [Recovered/Resolved]
  - Depressed level of consciousness [Recovered/Resolved]
  - Pleural effusion [Recovered/Resolved]
  - Intentional product misuse [Recovered/Resolved]
  - Drug abuse [Unknown]
  - Hypotension [Recovered/Resolved]
  - Lactic acidosis [Recovered/Resolved]
  - Metabolic acidosis [Recovered/Resolved]

NARRATIVE: CASE EVENT DATE: 20210101
